FAERS Safety Report 7476480-4 (Version None)
Quarter: 2011Q2

REPORT INFORMATION
  Report Type: 
  Country: None (occurrence: None)
  Receive Date: 20110512
  Receipt Date: 20110503
  Transmission Date: 20111010
  Serious: Yes (Death, Other)
  Sender: FDA-Public Use
  Company Number: US-CEPHALON-2011002297

PATIENT

DRUGS (2)
  1. TREANDA [Suspect]
     Indication: WALDENSTROM'S MACROGLOBULINAEMIA
     Route: 042
  2. RITUXAN [Suspect]
     Indication: WALDENSTROM'S MACROGLOBULINAEMIA
     Route: 042

REACTIONS (1)
  - DIFFUSE LARGE B-CELL LYMPHOMA [None]
